FAERS Safety Report 21689028 (Version 1)
Quarter: 2022Q4

REPORT INFORMATION
  Report Type: Spontaneous
  Country: CN (occurrence: CN)
  Receive Date: 20221206
  Receipt Date: 20221206
  Transmission Date: 20230112
  Serious: Yes (Hospitalization)
  Sender: FDA-Public Use
  Company Number: CN-PFIZER INC-PV202200114909

PATIENT
  Age: 14 Year
  Sex: Female
  Weight: 45 kg

DRUGS (2)
  1. ZITHROMAX [Suspect]
     Active Substance: AZITHROMYCIN DIHYDRATE
     Indication: Respiratory tract infection
     Dosage: 0.5 G, 1X/DAY
     Route: 048
     Dates: start: 20221120, end: 20221123
  2. FU FANG XIAN ZHU LI [Concomitant]
     Indication: Respiratory tract infection
     Dosage: 10 ML, 3X/DAY
     Route: 048
     Dates: start: 20221120, end: 20221123

REACTIONS (5)
  - White blood cell count decreased [Recovered/Resolved]
  - Anaemia [Recovered/Resolved]
  - Chest pain [Recovering/Resolving]
  - C-reactive protein increased [Unknown]
  - Neutrophil count increased [Unknown]

NARRATIVE: CASE EVENT DATE: 20221120
